FAERS Safety Report 6554485-5 (Version None)
Quarter: 2010Q1

REPORT INFORMATION
  Report Type: 
  Country: None (occurrence: None)
  Receive Date: 20100127
  Receipt Date: 20100105
  Transmission Date: 20100710
  Serious: Yes (Hospitalization)
  Sender: FDA-Public Use
  Company Number: FR-SANOFI-AVENTIS-2010SA003119

PATIENT
  Age: 3 Year
  Sex: Male

DRUGS (3)
  1. DESMOPRESSIN ACETATE [Suspect]
     Route: 048
     Dates: start: 20090901
  2. DESMOPRESSIN ACETATE [Suspect]
     Route: 048
     Dates: start: 20090901
  3. DESMOPRESSIN ACETATE [Suspect]
     Route: 048
     Dates: start: 20090901

REACTIONS (3)
  - ATRIAL THROMBOSIS [None]
  - DEEP VEIN THROMBOSIS [None]
  - PULMONARY EMBOLISM [None]
